FAERS Safety Report 25046298 (Version 3)
Quarter: 2025Q2

REPORT INFORMATION
  Report Type: Report from Study
  Country: CA (occurrence: CA)
  Receive Date: 20250306
  Receipt Date: 20250528
  Transmission Date: 20250716
  Serious: Yes (Other)
  Sender: ABBVIE
  Company Number: CA-ABBVIE-6158984

PATIENT
  Age: 50 Year
  Sex: Male

DRUGS (2)
  1. RINVOQ [Suspect]
     Active Substance: UPADACITINIB
     Indication: Crohn^s disease
     Dosage: FOR 12 WEEKS
     Route: 048
     Dates: start: 20241219, end: 20250210
  2. RINVOQ [Suspect]
     Active Substance: UPADACITINIB
     Indication: Crohn^s disease
     Dosage: WITH OR WITHOUT FOOD ,DO NOT CHEW, SPLIT, OR CRUSH,?FORM STRENGTH 30 MG
     Route: 048
     Dates: start: 20250212

REACTIONS (9)
  - Cholecystectomy [Unknown]
  - Gastrointestinal procedural complication [Unknown]
  - Crohn^s disease [Not Recovered/Not Resolved]
  - General physical health deterioration [Unknown]
  - Faeces soft [Unknown]
  - Frequent bowel movements [Unknown]
  - Clostridium difficile infection [Unknown]
  - Ileocolectomy [Unknown]
  - Psoriasis [Unknown]

NARRATIVE: CASE EVENT DATE: 20250101
